FAERS Safety Report 9516622 (Version 3)
Quarter: 2013Q4

REPORT INFORMATION
  Report Type: Spontaneous
  Country: US (occurrence: US)
  Receive Date: 20130911
  Receipt Date: 20131230
  Transmission Date: 20140711
  Serious: Yes (Death)
  Sender: FDA-Public Use
  Company Number: US-GLAXOSMITHKLINE-B0728936A

PATIENT
  Age: 61 Year
  Sex: Male
  Weight: 134.5 kg

DRUGS (1)
  1. AVANDIA [Suspect]
     Indication: DIABETES MELLITUS
     Dosage: 8MG PER DAY
     Route: 048
     Dates: start: 200005, end: 200508

REACTIONS (3)
  - Acute myocardial infarction [Fatal]
  - Cardiac failure congestive [Unknown]
  - Cardiovascular disorder [Unknown]
